FAERS Safety Report 4910256-4 (Version None)
Quarter: 2006Q1

REPORT INFORMATION
  Report Type: 
  Country: None (occurrence: None)
  Receive Date: 20060209
  Receipt Date: 20060202
  Transmission Date: 20060701
  Serious: Yes (Life-Threatening, Other)
  Sender: FDA-Public Use
  Company Number: 2006-DE-00552GD

PATIENT
  Age: 10 Year
  Sex: Male

DRUGS (2)
  1. SALBUTAMOL (SALBUTAMOL) [Suspect]
     Indication: COUGH
     Dosage: 2.5 MG, IH
     Route: 055
  2. CEFTRIAXONE [Suspect]
     Indication: PNEUMONIA
     Dosage: IV
     Route: 042

REACTIONS (19)
  - BLOOD PRESSURE DECREASED [None]
  - CARDIAC DISORDER [None]
  - CARDIAC OUTPUT DECREASED [None]
  - CARDIOGENIC SHOCK [None]
  - CEREBRAL HYPOPERFUSION [None]
  - CONDITION AGGRAVATED [None]
  - ELECTROCARDIOGRAM ST SEGMENT DEPRESSION [None]
  - ELECTROCARDIOGRAM T WAVE INVERSION [None]
  - HAEMOLYSIS [None]
  - HAEMOLYTIC ANAEMIA [None]
  - LOSS OF CONSCIOUSNESS [None]
  - MYOCARDIAL ISCHAEMIA [None]
  - PALLOR [None]
  - PERIPHERAL COLDNESS [None]
  - POOR PERIPHERAL CIRCULATION [None]
  - RESPIRATORY DISTRESS [None]
  - SHOCK [None]
  - SINUS TACHYCARDIA [None]
  - TACHYCARDIA [None]
